FAERS Safety Report 5152584-6 (Version None)
Quarter: 2006Q4

REPORT INFORMATION
  Report Type: 
  Country: None (occurrence: None)
  Receive Date: 20061109
  Receipt Date: 20061027
  Transmission Date: 20070319
  Serious: Yes (Hospitalization)
  Sender: FDA-Public Use
  Company Number: 2006121477

PATIENT
  Age: 76 Year
  Sex: Female

DRUGS (22)
  1. CELEBREX [Suspect]
     Dosage: ORAL
     Route: 048
     Dates: start: 20060731
  2. CIPROFLOXACIN [Suspect]
     Indication: PYELONEPHRITIS ACUTE
     Dates: start: 20060810
  3. CIPROFLOXACIN [Suspect]
     Indication: PYONEPHROSIS
     Dates: start: 20060810
  4. BACTRIM [Suspect]
     Indication: PYELONEPHRITIS ACUTE
     Dates: start: 20060818, end: 20060831
  5. BACTRIM [Suspect]
     Indication: PYONEPHROSIS
     Dates: start: 20060818, end: 20060831
  6. ROCEPHIN [Suspect]
     Indication: PYELONEPHRITIS ACUTE
     Dates: start: 20060810
  7. ROCEPHIN [Suspect]
     Indication: PYONEPHROSIS
     Dates: start: 20060810
  8. ACETAMINOPHEN [Concomitant]
  9. MORPHINE SULFATE [Concomitant]
  10. ATORVASTATIN CALCIUM [Concomitant]
  11. PROPRANOLOL [Concomitant]
  12. PAROXETINE HYDROCHLORIDE [Concomitant]
  13. FOSAMAX [Concomitant]
  14. FORLAX (MACROGOL) [Concomitant]
  15. LANSOPRAZOLE [Concomitant]
  16. OMEPRAZOLE [Concomitant]
  17. ACETAMINOPHEN [Concomitant]
  18. LEVOCETIRIZINE (LEVOCETIRIZINE) [Concomitant]
  19. NOROXIN [Concomitant]
  20. GYNO-PEVARYL (ECONAZOLE NITRATE) [Concomitant]
  21. MICONAZOLE NITRATE [Concomitant]
  22. KETOCONAZOLE [Concomitant]

REACTIONS (2)
  - ODYNOPHAGIA [None]
  - STEVENS-JOHNSON SYNDROME [None]
